FAERS Safety Report 9415834 (Version 2)
Quarter: 2013Q3

REPORT INFORMATION
  Report Type: Spontaneous
  Country: US (occurrence: US)
  Receive Date: 20130724
  Receipt Date: 20130808
  Transmission Date: 20140515
  Serious: No
  Sender: FDA-Public Use
  Company Number: US-009507513-1307USA006965

PATIENT
  Age: 52 Year
  Sex: Female

DRUGS (2)
  1. VICTRELIS [Suspect]
     Indication: HEPATITIS C
     Dosage: 800 MG, TID
     Route: 048
     Dates: start: 201306, end: 20130711
  2. VICTRELIS [Suspect]
     Dosage: UNK
     Dates: start: 20130718

REACTIONS (4)
  - Pain of skin [Unknown]
  - Bone marrow disorder [Unknown]
  - Pallor [Unknown]
  - Dizziness [Unknown]
